FAERS Safety Report 5280682-5 (Version None)
Quarter: 2007Q1

REPORT INFORMATION
  Report Type: 
  Country: None (occurrence: None)
  Receive Date: 20070322
  Receipt Date: 20070312
  Transmission Date: 20070707
  Serious: Yes (Life-Threatening)
  Sender: FDA-Public Use
  Company Number: 2007EU000537

PATIENT
  Age: 61 Year
  Sex: Male
  Weight: 74 kg

DRUGS (34)
  1. TACROLIMUS [Suspect]
     Indication: HEART TRANSPLANT
     Dosage: SEE IMAGE
     Route: 048
     Dates: start: 20070125, end: 20070126
  2. TACROLIMUS [Suspect]
     Indication: HEART TRANSPLANT
     Dosage: SEE IMAGE
     Route: 048
     Dates: start: 20070127, end: 20070127
  3. TACROLIMUS [Suspect]
     Indication: HEART TRANSPLANT
     Dosage: SEE IMAGE
     Route: 048
     Dates: start: 20070128, end: 20070207
  4. TACROLIMUS [Suspect]
     Indication: HEART TRANSPLANT
     Dosage: SEE IMAGE
     Route: 048
     Dates: start: 20070208, end: 20070208
  5. TACROLIMUS [Suspect]
     Indication: HEART TRANSPLANT
     Dosage: SEE IMAGE
     Route: 048
     Dates: start: 20070209, end: 20070214
  6. TACROLIMUS [Suspect]
     Indication: HEART TRANSPLANT
     Dosage: SEE IMAGE
     Route: 048
     Dates: start: 20070215, end: 20070215
  7. TACROLIMUS [Suspect]
     Indication: HEART TRANSPLANT
     Dosage: SEE IMAGE
     Route: 048
     Dates: start: 20070216, end: 20070216
  8. TACROLIMUS [Suspect]
     Indication: HEART TRANSPLANT
     Dosage: SEE IMAGE
     Route: 048
     Dates: start: 20070217, end: 20070217
  9. TACROLIMUS [Suspect]
     Indication: HEART TRANSPLANT
     Dosage: SEE IMAGE
     Route: 048
     Dates: start: 20070218, end: 20070218
  10. TACROLIMUS [Suspect]
     Indication: HEART TRANSPLANT
     Dosage: SEE IMAGE
     Route: 048
     Dates: start: 20070219
  11. TACROLIMUS [Suspect]
     Indication: HEART TRANSPLANT
     Dosage: SEE IMAGE
     Route: 042
     Dates: start: 20070125, end: 20070125
  12. TACROLIMUS [Suspect]
     Indication: HEART TRANSPLANT
     Dosage: SEE IMAGE
     Route: 042
     Dates: start: 20070126, end: 20070126
  13. TACROLIMUS [Suspect]
     Indication: HEART TRANSPLANT
     Dosage: SEE IMAGE
     Route: 042
     Dates: start: 20070127, end: 20070127
  14. TACROLIMUS [Suspect]
     Indication: HEART TRANSPLANT
     Dosage: SEE IMAGE
     Route: 042
     Dates: start: 20070128, end: 20070128
  15. TACROLIMUS [Suspect]
     Indication: HEART TRANSPLANT
     Dosage: SEE IMAGE
     Route: 042
     Dates: start: 20070129, end: 20070129
  16. TACROLIMUS [Suspect]
     Indication: HEART TRANSPLANT
     Dosage: SEE IMAGE
     Route: 042
     Dates: start: 20070130, end: 20070131
  17. TACROLIMUS [Suspect]
     Indication: HEART TRANSPLANT
     Dosage: SEE IMAGE
     Route: 042
     Dates: start: 20070201, end: 20070201
  18. TACROLIMUS [Suspect]
     Indication: HEART TRANSPLANT
     Dosage: SEE IMAGE
     Route: 042
     Dates: start: 20070202, end: 20070202
  19. TACROLIMUS [Suspect]
     Indication: HEART TRANSPLANT
     Dosage: SEE IMAGE
     Route: 042
     Dates: start: 20070203, end: 20070207
  20. TACROLIMUS [Suspect]
     Indication: HEART TRANSPLANT
     Dosage: SEE IMAGE
     Route: 042
     Dates: start: 20070208, end: 20070208
  21. TACROLIMUS [Suspect]
     Indication: HEART TRANSPLANT
     Dosage: SEE IMAGE
     Route: 042
     Dates: start: 20070209, end: 20070210
  22. TRACLEER [Suspect]
     Dosage: SEE IMAGE
     Route: 048
     Dates: start: 20060425, end: 20070124
  23. TRACLEER [Suspect]
     Dosage: SEE IMAGE
     Route: 048
     Dates: start: 20070125, end: 20070128
  24. TRACLEER [Suspect]
     Dosage: SEE IMAGE
     Route: 048
     Dates: start: 20070129, end: 20070129
  25. TRACLEER [Suspect]
     Dosage: SEE IMAGE
     Route: 048
     Dates: start: 20070130, end: 20070205
  26. TRACLEER [Suspect]
     Dosage: SEE IMAGE
     Route: 048
     Dates: start: 20070206, end: 20070219
  27. LEVOTHYROXINE SODIUM [Concomitant]
  28. FOSINOPRIL SODIUM [Concomitant]
  29. PANTOPRAZOLE SODIUM [Concomitant]
  30. AZATHIOPRINE [Concomitant]
  31. PREDNISOLONE [Concomitant]
  32. PERENTEROL (SACCHAROMYCES BOULARDIL LYOPHIZED) [Concomitant]
  33. TORSEMIDE [Concomitant]
  34. XIPAMID (XIPAMIDE) [Concomitant]

REACTIONS (2)
  - DRUG INTERACTION [None]
  - DRUG LEVEL DECREASED [None]
